FAERS Safety Report 14999774 (Version 1)
Quarter: 2018Q2

REPORT INFORMATION
  Report Type: Spontaneous
  Country: US (occurrence: US)
  Receive Date: 20180521
  Receipt Date: 20180521
  Transmission Date: 20180711
  Serious: Yes (Hospitalization)
  Sender: FDA-Public Use
  Company Number: None

PATIENT
  Age: 45 Year
  Sex: Female
  Weight: 53.07 kg

DRUGS (1)
  1. DAPTOMYCIN 500MG VIAL [Suspect]
     Active Substance: DAPTOMYCIN
     Indication: MASTITIS
     Dosage: ?          OTHER ROUTE:IV PUSH?
     Route: 042

REACTIONS (1)
  - Chills [None]

NARRATIVE: CASE EVENT DATE: 20180507
